FAERS Safety Report 6578627-0 (Version None)
Quarter: 2010Q1

REPORT INFORMATION
  Report Type: 
  Country: None (occurrence: None)
  Receive Date: 20100211
  Receipt Date: 20100203
  Transmission Date: 20100710
  Serious: Yes (Hospitalization)
  Sender: FDA-Public Use
  Company Number: TR-ABBOTT-10P-161-0623822-00

PATIENT
  Age: 31 Year
  Sex: Female

DRUGS (2)
  1. HUMIRA [Suspect]
     Indication: CROHN'S DISEASE
     Route: 058
     Dates: start: 20100110, end: 20100115
  2. HUMIRA [Suspect]
     Indication: INTESTINAL FISTULA

REACTIONS (4)
  - ABDOMINAL ABSCESS [None]
  - ABDOMINAL PAIN [None]
  - ENTEROCUTANEOUS FISTULA [None]
  - PYREXIA [None]
